FAERS Safety Report 7238168-4 (Version None)
Quarter: 2011Q1

REPORT INFORMATION
  Report Type: 
  Country: None (occurrence: None)
  Receive Date: 20110119
  Receipt Date: 20110119
  Transmission Date: 20110831
  Serious: Yes (Other)
  Sender: FDA-Public Use
  Company Number: None

PATIENT
  Age: 68 Year
  Sex: Female
  Weight: 90.7194 kg

DRUGS (1)
  1. ALL-DAY ALLERGY 10 MG CETIRIZINE HYDROCHLROIDE KROGER CO. [Suspect]
     Indication: SEASONAL ALLERGY
     Dosage: 1 TABLET ONCE DAILY PO
     Route: 048
     Dates: start: 20101218, end: 20110106

REACTIONS (2)
  - RASH PRURITIC [None]
  - DRUG INEFFECTIVE [None]
